FAERS Safety Report 22051990 (Version 1)
Quarter: 2023Q1

REPORT INFORMATION
  Report Type: Spontaneous
  Country: NL (occurrence: NL)
  Receive Date: 20230302
  Receipt Date: 20230302
  Transmission Date: 20230418
  Serious: Yes (Other)
  Sender: FDA-Public Use
  Company Number: None

PATIENT
  Sex: Male
  Weight: 78 kg

DRUGS (5)
  1. APIXABAN [Suspect]
     Active Substance: APIXABAN
     Indication: Cardiovascular event prophylaxis
     Dosage: STRENGTH:  2.5 MG, 2 X 1
     Dates: start: 20221125
  2. FOLIC ACID [Concomitant]
     Active Substance: FOLIC ACID
     Dosage: STRENGTH: 5 MG (MILLIGRAM)
  3. CALCIUM CARBONATE\VITAMIN D [Concomitant]
     Active Substance: CALCIUM CARBONATE\VITAMIN D
     Dosage: CHEWABLE TABLET, 1.25 G (GRAM)/800 UNITS
  4. LISINOPRIL [Concomitant]
     Active Substance: LISINOPRIL
     Dosage: STRENGTH: 10 MG (MILLIGRAM)
  5. SIMVASTATIN [Concomitant]
     Active Substance: SIMVASTATIN
     Dosage: STRENGTH: 20 MG (MILLIGRAM)

REACTIONS (1)
  - Hallucination, visual [Recovering/Resolving]
